FAERS Safety Report 10860633 (Version 1)
Quarter: 2015Q1

REPORT INFORMATION
  Report Type: Report from Study
  Country: US (occurrence: US)
  Receive Date: 20150224
  Receipt Date: 20150224
  Transmission Date: 20150721
  Serious: Yes (Other)
  Sender: FDA-Public Use
  Company Number: US-ROCHE-1542388

PATIENT

DRUGS (1)
  1. RITUXIMAB [Suspect]
     Active Substance: RITUXIMAB
     Indication: GLOMERULONEPHRITIS MEMBRANOUS
     Route: 042

REACTIONS (2)
  - Syncope [Recovered/Resolved with Sequelae]
  - Bronchitis [Recovered/Resolved]

NARRATIVE: CASE EVENT DATE: 20140131
